FAERS Safety Report 6023148-7 (Version None)
Quarter: 2008Q4

REPORT INFORMATION
  Report Type: 
  Country: None (occurrence: None)
  Receive Date: 20081230
  Receipt Date: 20081227
  Transmission Date: 20090506
  Serious: Yes (Death)
  Sender: FDA-Public Use
  Company Number: A0761759A

PATIENT
  Age: 88 Year
  Sex: Female
  Weight: 50 kg

DRUGS (4)
  1. SERETIDE [Suspect]
     Indication: ASTHMA
     Dates: start: 19971201, end: 20081218
  2. SPIRIVA [Concomitant]
     Dates: start: 19971201, end: 20081218
  3. RIVOTRIL [Concomitant]
     Dates: start: 20051201, end: 20081218
  4. TYLEX [Concomitant]
     Dates: start: 19930101, end: 20081218

REACTIONS (1)
  - INFARCTION [None]
